FAERS Safety Report 18207403 (Version 1)
Quarter: 2020Q3

REPORT INFORMATION
  Report Type: Spontaneous
  Country: PL (occurrence: PL)
  Receive Date: 20200828
  Receipt Date: 20200828
  Transmission Date: 20201103
  Serious: Yes (Life-Threatening, Hospitalization, Other)
  Sender: FDA-Public Use
  Company Number: PL-ASTRAZENECA-2020SF09269

PATIENT
  Age: 72 Year
  Sex: Female
  Weight: 80 kg

DRUGS (7)
  1. AMLOZEK [Suspect]
     Active Substance: AMLODIPINE BESYLATE
     Dosage: 5
     Route: 065
     Dates: start: 20200716
  2. LOKREN [Suspect]
     Active Substance: BETAXOLOL HYDROCHLORIDE
     Route: 065
     Dates: start: 20200716
  3. POLSART [Suspect]
     Active Substance: TELMISARTAN
     Route: 065
     Dates: start: 20200716
  4. ACARD [Suspect]
     Active Substance: ASPIRIN
     Route: 065
     Dates: start: 20200716
  5. ATORIS [Suspect]
     Active Substance: ATORVASTATIN CALCIUM
     Dosage: 20
     Route: 065
     Dates: start: 20200716
  6. KETILEPT [Suspect]
     Active Substance: QUETIAPINE FUMARATE
     Route: 048
     Dates: start: 20200716
  7. DIUVER [Suspect]
     Active Substance: TORSEMIDE
     Route: 065
     Dates: start: 20200716

REACTIONS (3)
  - Intentional overdose [Unknown]
  - Atrioventricular block [Recovering/Resolving]
  - Bradycardia [Recovering/Resolving]

NARRATIVE: CASE EVENT DATE: 20200716
